FAERS Safety Report 7335299-5 (Version None)
Quarter: 2011Q1

REPORT INFORMATION
  Report Type: 
  Country: None (occurrence: None)
  Receive Date: 20110307
  Receipt Date: 20110222
  Transmission Date: 20110831
  Serious: Yes (Other)
  Sender: FDA-Public Use
  Company Number: PHHY2011DE15301

PATIENT

DRUGS (2)
  1. CLOZAPINE [Interacting]
     Indication: SCHIZOPHRENIA, PARANOID TYPE
     Dosage: UNK
     Route: 048
  2. RITALIN LA [Suspect]
     Dosage: UNK
     Route: 048

REACTIONS (1)
  - SCHIZOPHRENIA [None]
